FAERS Safety Report 14830805 (Version 3)
Quarter: 2019Q1

REPORT INFORMATION
  Report Type: Spontaneous
  Country: US (occurrence: US)
  Receive Date: 20180430
  Receipt Date: 20190320
  Transmission Date: 20190417
  Serious: No
  Sender: FDA-Public Use
  Company Number: US-SA-2018SA108183

PATIENT
  Age: 74 Year
  Sex: Male

DRUGS (2)
  1. ALIROCUMAB PREFILLED PEN [Suspect]
     Active Substance: ALIROCUMAB
     Indication: HYPERLIPIDAEMIA
     Dosage: 150 MG, QOW
     Route: 058
     Dates: start: 20171030
  2. PRALUENT [Suspect]
     Active Substance: ALIROCUMAB
     Indication: HYPERLIPIDAEMIA
     Dosage: 150 MG,QOW
     Route: 058
     Dates: start: 20171030

REACTIONS (2)
  - Vision blurred [Unknown]
  - Vision blurred [Unknown]

NARRATIVE: CASE EVENT DATE: 20180409
